FAERS Safety Report 5196841-6 (Version None)
Quarter: 2006Q4

REPORT INFORMATION
  Report Type: 
  Country: None (occurrence: None)
  Receive Date: 20061227
  Receipt Date: 20061214
  Transmission Date: 20070319
  Serious: Yes (Death)
  Sender: FDA-Public Use
  Company Number: 2006153607

PATIENT
  Sex: Male

DRUGS (1)
  1. LYRICA [Suspect]

REACTIONS (1)
  - DEATH [None]
